FAERS Safety Report 20882858 (Version 2)
Quarter: 2022Q2

REPORT INFORMATION
  Report Type: Spontaneous
  Country: US (occurrence: US)
  Receive Date: 20220527
  Receipt Date: 20220623
  Transmission Date: 20220721
  Serious: Yes (Other)
  Sender: FDA-Public Use
  Company Number: US-CELLTRION INC.-2022US007349

PATIENT

DRUGS (2)
  1. INFLECTRA [Suspect]
     Active Substance: INFLIXIMAB-DYYB
     Indication: Stem cell transplant
     Dosage: 500 MG, WEEKLY (FOR THE 5 DOSES THE PATIENT ALREADY HAS RECEIVED); BLANK MG OF INFLECTRA FREQUENCY:
  2. INFLECTRA [Suspect]
     Active Substance: INFLIXIMAB-DYYB
     Indication: Graft versus host disease

REACTIONS (3)
  - Graft versus host disease [Unknown]
  - Stem cell transplant [Unknown]
  - Off label use [Unknown]
